FAERS Safety Report 23460442 (Version 1)
Quarter: 2024Q1

REPORT INFORMATION
  Report Type: Spontaneous
  Country: US (occurrence: US)
  Receive Date: 20240131
  Receipt Date: 20240131
  Transmission Date: 20240410
  Serious: No
  Sender: FDA-Public Use
  Company Number: US-STRIDES ARCOLAB LIMITED-2023SP013575

PATIENT
  Age: 69 Year
  Sex: Male

DRUGS (2)
  1. CABERGOLINE [Suspect]
     Active Substance: CABERGOLINE
     Indication: Pituitary tumour benign
     Dosage: UNK
     Route: 065
  2. CABERGOLINE [Suspect]
     Active Substance: CABERGOLINE
     Dosage: UNK RESTARTED
     Route: 065

REACTIONS (2)
  - Intentional product misuse [Unknown]
  - Treatment noncompliance [Unknown]
